FAERS Safety Report 8436011 (Version 2)
Quarter: 2012Q4

REPORT INFORMATION
  Report Type: 
  Country: US (occurrence: US)
  Receive Date: 20120301
  Receipt Date: 20120914
  Transmission Date: 20130627
  Serious: Yes (Hospitalization, Other)
  Sender: FDA-Public Use
  Company Number: US-PFIZER INC-2011055525

PATIENT
  Age: 67 Year
  Sex: Female

DRUGS (10)
  1. SEPTRA [Suspect]
     Dosage: 1600 mg, UNK
     Route: 048
     Dates: start: 20101205, end: 20101210
  2. METFORMIN HCL [Interacting]
     Indication: TYPE 2 DIABETES MELLITUS
     Dosage: 2000 mg, UNK
     Dates: start: 20100823
  3. SAXAGLIPTIN [Interacting]
     Indication: TYPE 2 DIABETES MELLITUS
     Dosage: UNK
     Dates: start: 20100823
  4. PLACEBO [Interacting]
     Indication: TYPE 2 DIABETES MELLITUS
     Dosage: UNK mg, UNK
  5. WARFARIN SODIUM [Interacting]
  6. INSULIN GLARGINE [Interacting]
     Indication: TYPE 2 DIABETES MELLITUS
     Dosage: 35 IU, UNK
  7. INSULIN LISPRO [Interacting]
     Indication: TYPE 2 DIABETES MELLITUS
     Dosage: 10 IU, UNK
  8. INSULIN LISPRO [Interacting]
     Dosage: 30 IU, UNK
  9. GLUCAGON [Interacting]
     Indication: TYPE 2 DIABETES MELLITUS
     Dosage: 1 mg, UNK
  10. ASPIRIN ^BAYER^ [Concomitant]

REACTIONS (6)
  - Pulmonary oedema [Recovered/Resolved]
  - Cellulitis [Recovered/Resolved]
  - International normalised ratio increased [Unknown]
  - Drug interaction [Unknown]
  - Skin ulcer [Not Recovered/Not Resolved]
  - Dyspnoea [Recovered/Resolved]
